FAERS Safety Report 9878900 (Version 2)
Quarter: 2014Q1

REPORT INFORMATION
  Report Type: Spontaneous
  Country: US (occurrence: US)
  Receive Date: 20140206
  Receipt Date: 20140206
  Transmission Date: 20141002
  Serious: No
  Sender: FDA-Public Use
  Company Number: US-ALLERGAN-1310149US

PATIENT
  Age: 78 Year
  Sex: Female

DRUGS (4)
  1. BOTOX COSMETIC [Suspect]
     Indication: SKIN WRINKLING
     Dosage: 20 UNITS, SINGLE
     Route: 030
     Dates: start: 20130607, end: 20130607
  2. BOTOX COSMETIC [Suspect]
     Indication: SKIN WRINKLING
     Dosage: 10 UNK, UNK
     Route: 030
     Dates: start: 20130607, end: 20130607
  3. BOTOX COSMETIC [Suspect]
     Indication: SKIN WRINKLING
  4. CALCIUM [Concomitant]

REACTIONS (3)
  - Skin tightness [Not Recovered/Not Resolved]
  - Skin wrinkling [Not Recovered/Not Resolved]
  - Facial paresis [Not Recovered/Not Resolved]
